FAERS Safety Report 10566325 (Version 3)
Quarter: 2015Q1

REPORT INFORMATION
  Report Type: Spontaneous
  Country: JP (occurrence: JP)
  Receive Date: 20141105
  Receipt Date: 20150126
  Transmission Date: 20150720
  Serious: Yes (Other)
  Sender: FDA-Public Use
  Company Number: JP-009507513-1410JPN014691

PATIENT
  Age: 19 Year
  Sex: Female

DRUGS (3)
  1. LUNABELL [Concomitant]
     Active Substance: ETHINYL ESTRADIOL\NORETHINDRONE
     Dosage: DAILY DOSE UNKNOWN
     Route: 048
     Dates: start: 201408
  2. YAZ [Concomitant]
     Active Substance: DROSPIRENONE\ETHINYL ESTRADIOL
     Dosage: DAILY DOSE UNKNOWN
     Route: 065
     Dates: start: 201408
  3. DESOGESTREL AND ETHINYL ESTRADIOL [Suspect]
     Active Substance: DESOGESTREL\ETHINYL ESTRADIOL
     Indication: DYSMENORRHOEA
     Dosage: DAILY DOSE UNKNOWN, ONCE A DAY
     Route: 048
     Dates: start: 201407, end: 201408

REACTIONS (3)
  - Drug administration error [Unknown]
  - Headache [Recovered/Resolved]
  - Pigmentation disorder [Unknown]

NARRATIVE: CASE EVENT DATE: 201407
